FAERS Safety Report 25790502 (Version 1)
Quarter: 2025Q3

REPORT INFORMATION
  Report Type: Other
  Country: US (occurrence: US)
  Receive Date: 20250911
  Receipt Date: 20250911
  Transmission Date: 20251021
  Serious: Yes (Hospitalization, Other)
  Sender: LEPU PHARMACEUTICAL TECHNOLOGY CO., LTD.
  Company Number: US-Lepu Pharmaceutical Technology Co., Ltd.-2184277

PATIENT
  Age: 74 Year
  Sex: Female

DRUGS (8)
  1. ATORVASTATIN CALCIUM [Suspect]
     Active Substance: ATORVASTATIN CALCIUM
     Indication: Product used for unknown indication
  2. PRASUGREL [Suspect]
     Active Substance: PRASUGREL
  3. LEVOTHYROXINE [Concomitant]
     Active Substance: LEVOTHYROXINE
  4. FAMOTIDINE [Concomitant]
     Active Substance: FAMOTIDINE
  5. DENOSUMAB [Concomitant]
     Active Substance: DENOSUMAB
  6. ASPIRIN [Concomitant]
     Active Substance: ASPIRIN
  7. ATENOLOL [Concomitant]
     Active Substance: ATENOLOL
  8. AMLODIPINE [Concomitant]
     Active Substance: AMLODIPINE BESYLATE

REACTIONS (1)
  - Drug reaction with eosinophilia and systemic symptoms [Recovered/Resolved]
